FAERS Safety Report 11597783 (Version 1)
Quarter: 2015Q3

REPORT INFORMATION
  Report Type: Spontaneous
  Country: US (occurrence: US)
  Receive Date: 20150916
  Receipt Date: 20150916
  Transmission Date: 20151125
  Serious: No
  Sender: FDA-Public Use
  Company Number: US-ELI_LILLY_AND_COMPANY-US200801001714

PATIENT
  Sex: Female
  Weight: 63.49 kg

DRUGS (6)
  1. CARBIDOPA. [Concomitant]
     Active Substance: CARBIDOPA
  2. COREG [Concomitant]
     Active Substance: CARVEDILOL
  3. FORTEO [Suspect]
     Active Substance: TERIPARATIDE
     Indication: OSTEOPOROSIS
     Dates: start: 200710
  4. VITAMINS NOS [Concomitant]
     Active Substance: VITAMINS
  5. MYRTECAINE [Concomitant]
     Active Substance: MYRTECAINE
  6. CALCIUM [Concomitant]
     Active Substance: CALCIUM

REACTIONS (2)
  - Swelling [Unknown]
  - Weight increased [Unknown]
